FAERS Safety Report 9740576 (Version 1)
Quarter: 2013Q4

REPORT INFORMATION
  Report Type: Spontaneous
  Country: US (occurrence: US)
  Receive Date: 20131209
  Receipt Date: 20131209
  Transmission Date: 20140711
  Serious: No
  Sender: FDA-Public Use
  Company Number: US-BIOGENIDEC-2013BI092703

PATIENT
  Age: 56 Year
  Sex: Female

DRUGS (6)
  1. TECFIDERA [Suspect]
     Indication: MULTIPLE SCLEROSIS
     Route: 048
     Dates: start: 20130813
  2. TECFIDERA [Suspect]
     Indication: MULTIPLE SCLEROSIS
     Route: 048
     Dates: end: 20130824
  3. IBUPROFEN [Concomitant]
  4. PREMARIN [Concomitant]
  5. ROPINIROLE [Concomitant]
  6. PANTOPRAZOLE [Concomitant]

REACTIONS (3)
  - Drug intolerance [Recovered/Resolved]
  - Food poisoning [Recovered/Resolved]
  - Gastroenteritis viral [Recovered/Resolved]
